FAERS Safety Report 15439120 (Version 1)
Quarter: 2018Q3

REPORT INFORMATION
  Report Type: Spontaneous
  Country: US (occurrence: US)
  Receive Date: 20180924
  Receipt Date: 20180924
  Transmission Date: 20181010
  Serious: No
  Sender: FDA-Public Use
  Company Number: None

PATIENT
  Age: 35 Year
  Sex: Female
  Weight: 110.25 kg

DRUGS (2)
  1. EUCRISA [Suspect]
     Active Substance: CRISABOROLE
     Indication: DERMATITIS CONTACT
     Route: 061
  2. MUPIROCIN CREAM [Concomitant]
     Active Substance: MUPIROCIN

REACTIONS (3)
  - Dermatitis contact [None]
  - Condition aggravated [None]
  - Product formulation issue [None]

NARRATIVE: CASE EVENT DATE: 20180901
